FAERS Safety Report 6069346-8 (Version None)
Quarter: 2009Q1

REPORT INFORMATION
  Report Type: 
  Country: None (occurrence: None)
  Receive Date: 20090206
  Receipt Date: 20090206
  Transmission Date: 20090719
  Serious: Yes (Life-Threatening, Other)
  Sender: FDA-Public Use
  Company Number: US-PFIZER INC-2008098855

PATIENT
  Age: 69 Year
  Sex: Male
  Weight: 108.84 kg

DRUGS (11)
  1. LYRICA [Suspect]
     Indication: CONVULSION
     Dosage: 200 MG, 2X/DAY
  2. GENERAL NUTRIENTS [Suspect]
  3. CYMBALTA [Concomitant]
     Dosage: UNK
  4. PRIMIDONE [Concomitant]
     Dosage: UNK
  5. METOCLOPRAMIDE [Concomitant]
     Dosage: UNK
  6. TRAMADOL [Concomitant]
     Dosage: UNK
  7. DUONEB [Concomitant]
     Dosage: UNK
  8. FUROSEMIDE [Concomitant]
     Dosage: UNK
  9. GLIPIZIDE [Concomitant]
     Dosage: UNK
  10. VICODIN [Concomitant]
     Dosage: UNK
  11. OXYBUTYNIN [Concomitant]
     Dosage: UNK

REACTIONS (3)
  - HYPERSENSITIVITY [None]
  - PRURITUS [None]
  - RESPIRATORY DISTRESS [None]
